FAERS Safety Report 5533443-3 (Version None)
Quarter: 2007Q4

REPORT INFORMATION
  Report Type: 
  Country: None (occurrence: None)
  Receive Date: 20071204
  Receipt Date: 20071126
  Transmission Date: 20080405
  Serious: Yes (Other)
  Sender: FDA-Public Use
  Company Number: JP-ASTRAZENECA-2007AP07588

PATIENT
  Sex: Female

DRUGS (1)
  1. DIPRIVAN [Suspect]
     Dosage: DOSE UNKNOWN
     Route: 042

REACTIONS (1)
  - HYPERTHERMIA MALIGNANT [None]
